FAERS Safety Report 4919821-1 (Version None)
Quarter: 2006Q1

REPORT INFORMATION
  Report Type: 
  Country: None (occurrence: None)
  Receive Date: 20060217
  Receipt Date: 20060207
  Transmission Date: 20060701
  Serious: Yes (Hospitalization)
  Sender: FDA-Public Use
  Company Number: 2006019460

PATIENT
  Age: 37 Year
  Sex: Male
  Weight: 68 kg

DRUGS (5)
  1. CLINDAMYCIN HCL [Suspect]
     Indication: OSTEOMYELITIS
     Dosage: 1800 MG (600 MG, EVERY DAY), ORAL
     Route: 048
     Dates: start: 20051222, end: 20060121
  2. NORTRIPTYLINE HCL [Suspect]
     Indication: PAIN
     Dosage: 25 MG (25 MG, EVERY DAY), ORAL
     Route: 048
     Dates: start: 20051127, end: 20060119
  3. NAPROXEN [Concomitant]
  4. ACETAMINOPHEN [Concomitant]
  5. NEXIUM [Concomitant]

REACTIONS (3)
  - JAUNDICE CHOLESTATIC [None]
  - LEG AMPUTATION [None]
  - PYREXIA [None]
